FAERS Safety Report 9064339 (Version 1)
Quarter: 2013Q1

REPORT INFORMATION
  Report Type: Spontaneous
  Country: US (occurrence: US)
  Receive Date: 20130201
  Receipt Date: 20130201
  Transmission Date: 20140127
  Serious: Yes (Other)
  Sender: FDA-Public Use
  Company Number: US-AMGEN-USASP2013005413

PATIENT
  Age: 87 Year
  Sex: Female

DRUGS (3)
  1. PROLIA [Suspect]
     Indication: OSTEOPOROSIS POSTMENOPAUSAL
  2. CALCIUM [Concomitant]
     Dosage: 1200 ABSENT, UNK
  3. VITAMIN D3 [Concomitant]
     Dosage: 1000 ABSENT, UNK

REACTIONS (6)
  - Myelodysplastic syndrome [Unknown]
  - Bone marrow failure [Unknown]
  - Skin haemorrhage [Unknown]
  - Pain [Unknown]
  - Flushing [Unknown]
  - Protein total abnormal [Recovered/Resolved]
